FAERS Safety Report 13256075 (Version 1)
Quarter: 2017Q1

REPORT INFORMATION
  Report Type: Spontaneous
  Country: US (occurrence: US)
  Receive Date: 20170219
  Receipt Date: 20170219
  Transmission Date: 20170428
  Serious: Yes (Disabling, Other)
  Sender: FDA-Public Use
  Company Number: None

PATIENT
  Age: 4 Year
  Sex: Female
  Weight: 18 kg

DRUGS (1)
  1. MIRALAX [Suspect]
     Active Substance: POLYETHYLENE GLYCOL 3350
     Indication: CONSTIPATION
     Dates: start: 20110201, end: 20170217

REACTIONS (4)
  - Obsessive-compulsive disorder [None]
  - Anxiety [None]
  - Anger [None]
  - Sleep terror [None]

NARRATIVE: CASE EVENT DATE: 20110201
